FAERS Safety Report 25283025 (Version 3)
Quarter: 2025Q2

REPORT INFORMATION
  Report Type: Spontaneous
  Country: US (occurrence: US)
  Receive Date: 20250508
  Receipt Date: 20250609
  Transmission Date: 20250716
  Serious: No
  Sender: PFIZER
  Company Number: US-PFIZER INC-202500092552

PATIENT
  Age: 50 Year
  Sex: Female
  Weight: 100.7 kg

DRUGS (5)
  1. GENOTROPIN [Suspect]
     Active Substance: SOMATROPIN
     Indication: Weight control
  2. GENOTROPIN [Suspect]
     Active Substance: SOMATROPIN
     Indication: Muscle mass
  3. PREDNISONE [Concomitant]
     Active Substance: PREDNISONE
  4. SYNTHROID [Concomitant]
     Active Substance: LEVOTHYROXINE SODIUM
  5. DDAVP [Concomitant]
     Active Substance: DESMOPRESSIN ACETATE

REACTIONS (2)
  - Off label use [Unknown]
  - Device defective [Unknown]
